FAERS Safety Report 8975475 (Version 2)
Quarter: 2013Q1

REPORT INFORMATION
  Report Type: Spontaneous
  Country: US (occurrence: US)
  Receive Date: 20121219
  Receipt Date: 20130108
  Transmission Date: 20140127
  Serious: No
  Sender: FDA-Public Use
  Company Number: US-VERTEX PHARMACEUTICALS INC.-2012-026310

PATIENT
  Sex: Male
  Weight: 84 kg

DRUGS (4)
  1. INCIVEK [Suspect]
     Indication: HEPATITIS C
     Dosage: 750 MG, TID
     Route: 048
     Dates: start: 20121106
  2. RIBAVIRIN [Suspect]
     Indication: HEPATITIS C
     Dosage: 400 MG AM, 600 MG PM
     Route: 048
     Dates: start: 20121106
  3. RIBAVIRIN [Suspect]
     Dosage: 800 MG, QD
     Route: 048
     Dates: start: 201212
  4. PEGASYS [Suspect]
     Indication: HEPATITIS C
     Dosage: 180 ?G, QW
     Route: 058
     Dates: start: 20121106

REACTIONS (2)
  - Anaemia [Not Recovered/Not Resolved]
  - Pruritus generalised [Not Recovered/Not Resolved]
